FAERS Safety Report 9601046 (Version 2)
Quarter: 2013Q4

REPORT INFORMATION
  Report Type: Spontaneous
  Country: US (occurrence: US)
  Receive Date: 20131004
  Receipt Date: 20131004
  Transmission Date: 20140711
  Serious: No
  Sender: FDA-Public Use
  Company Number: US-AMGEN-USASP2013032126

PATIENT
  Age: 56 Year
  Sex: Female
  Weight: 74.83 kg

DRUGS (2)
  1. ENBREL [Suspect]
     Indication: PRODUCT USED FOR UNKNOWN INDICATION
     Dosage: 50 MG, ONCE A WEEK
     Route: 058
  2. ARMOUR THYROID [Concomitant]
     Dosage: 60 MG, UNK

REACTIONS (2)
  - Oropharyngeal pain [Not Recovered/Not Resolved]
  - Nasopharyngitis [Unknown]
